FAERS Safety Report 6349642-7 (Version None)
Quarter: 2009Q3

REPORT INFORMATION
  Report Type: 
  Country: None (occurrence: None)
  Receive Date: 20090911
  Receipt Date: 20090901
  Transmission Date: 20100115
  Serious: Yes (Hospitalization)
  Sender: FDA-Public Use
  Company Number: FR-ELI_LILLY_AND_COMPANY-FR200907005400

PATIENT
  Age: 62 Year
  Sex: Female
  Weight: 38 kg

DRUGS (2)
  1. FORTEO [Suspect]
     Indication: OSTEOPOROSIS
     Dosage: 20 UG, DAILY (1/D)
     Route: 058
     Dates: start: 20090126
  2. CALCIDOSE [Concomitant]
     Dosage: 1 BAG, ORAL/BAG
     Route: 048
     Dates: start: 20090505

REACTIONS (5)
  - BODY MASS INDEX DECREASED [None]
  - HYPERCALCAEMIA [None]
  - HYPOPHAGIA [None]
  - PROTEIN TOTAL DECREASED [None]
  - WEIGHT GAIN POOR [None]
